FAERS Safety Report 9836633 (Version 1)
Quarter: 2014Q1

REPORT INFORMATION
  Report Type: Report from Study
  Country: CA (occurrence: CA)
  Receive Date: 20140123
  Receipt Date: 20140123
  Transmission Date: 20141002
  Serious: Yes (Other)
  Sender: FDA-Public Use
  Company Number: CA-JNJFOC-20140109283

PATIENT
  Age: 48 Year
  Sex: Female
  Weight: 122 kg

DRUGS (7)
  1. REMICADE [Suspect]
     Indication: CROHN^S DISEASE
     Route: 042
     Dates: start: 20061124
  2. PANTOLOC [Concomitant]
     Route: 065
  3. QUESTRAN [Concomitant]
     Route: 065
  4. MAXERAN [Concomitant]
     Route: 065
  5. DICETEL [Concomitant]
     Route: 065
  6. NITROFURANTOIN [Concomitant]
     Route: 065
  7. TYLENOL [Concomitant]
     Route: 065

REACTIONS (1)
  - Epistaxis [Recovered/Resolved]
